FAERS Safety Report 15334477 (Version 1)
Quarter: 2018Q3

REPORT INFORMATION
  Report Type: Spontaneous
  Country: US (occurrence: US)
  Receive Date: 20180827
  Receipt Date: 20180827
  Transmission Date: 20181010
  Serious: Yes (Death, Hospitalization)
  Sender: FDA-Public Use
  Company Number: None

PATIENT
  Age: 15 Year
  Sex: Male
  Weight: 134.4 kg

DRUGS (6)
  1. PREDNISONE. [Suspect]
     Active Substance: PREDNISONE
     Dates: end: 20180820
  2. VINCRISTINE SULFATE. [Suspect]
     Active Substance: VINCRISTINE SULFATE
     Dates: end: 20180808
  3. ONCASPAR [Suspect]
     Active Substance: PEGASPARGASE
     Dates: end: 20180728
  4. CYTARABINE. [Suspect]
     Active Substance: CYTARABINE
     Dates: end: 20180725
  5. METHOTREXATE. [Suspect]
     Active Substance: METHOTREXATE
     Dates: end: 20180801
  6. DAUNORUBICIN [Suspect]
     Active Substance: DAUNORUBICIN
     Dates: end: 20180808

REACTIONS (13)
  - Vomiting [None]
  - Anaemia [None]
  - Hyperkalaemia [None]
  - Thrombocytopenia [None]
  - Jaundice [None]
  - Hyponatraemia [None]
  - Metabolic acidosis [None]
  - Pain in extremity [None]
  - Abdominal pain [None]
  - Acute kidney injury [None]
  - Renal failure [None]
  - Nausea [None]
  - Neutropenia [None]

NARRATIVE: CASE EVENT DATE: 20180813
